FAERS Safety Report 9684329 (Version 1)
Quarter: 2013Q4

REPORT INFORMATION
  Report Type: Spontaneous
  Country: US (occurrence: US)
  Receive Date: 20131112
  Receipt Date: 20131112
  Transmission Date: 20140711
  Serious: Yes (Hospitalization)
  Sender: FDA-Public Use
  Company Number: US-ELI_LILLY_AND_COMPANY-US201311001114

PATIENT
  Age: 87 Year
  Sex: Male

DRUGS (2)
  1. GEMZAR [Suspect]
     Indication: PANCREATIC CARCINOMA
  2. LASIX [Concomitant]
     Indication: OEDEMA
     Route: 048

REACTIONS (3)
  - Dyspnoea [Unknown]
  - Wheezing [Unknown]
  - Oedema [Recovered/Resolved]
